FAERS Safety Report 11940692 (Version 2)
Quarter: 2016Q1

REPORT INFORMATION
  Report Type: Spontaneous
  Country: CN (occurrence: CN)
  Receive Date: 20160122
  Receipt Date: 20160128
  Transmission Date: 20160526
  Serious: Yes (Death)
  Sender: FDA-Public Use
  Company Number: PHHY2016CN006323

PATIENT
  Age: 57 Year
  Sex: Female

DRUGS (11)
  1. LEVOTHYROXINE. [Concomitant]
     Active Substance: LEVOTHYROXINE
     Indication: THYROXINE FREE DECREASED
     Dosage: 50 MG, BID
     Route: 048
  2. OXALIPLATIN. [Suspect]
     Active Substance: OXALIPLATIN
     Indication: METASTASES TO BONE
     Dosage: 200 MG (2 CYCLES)
     Route: 065
  3. OXALIPLATIN. [Suspect]
     Active Substance: OXALIPLATIN
     Indication: CHEMOTHERAPY
  4. GIMERACIL [Suspect]
     Active Substance: GIMERACIL
     Indication: METASTASES TO BONE
     Dosage: 2 CYCLES
     Route: 065
  5. LEVOTHYROXINE. [Concomitant]
     Active Substance: LEVOTHYROXINE
     Indication: TRI-IODOTHYRONINE FREE DECREASED
     Dosage: 50 MG, QD
     Route: 048
  6. OTERACIL POTASSIUM [Suspect]
     Active Substance: OTERACIL POTASSIUM
     Indication: CHEMOTHERAPY
  7. OTERACIL POTASSIUM [Suspect]
     Active Substance: OTERACIL POTASSIUM
     Indication: METASTASES TO BONE
     Dosage: 60 MG, BID (2 CYCLES)
     Route: 065
  8. HYDROCORTISONE. [Concomitant]
     Active Substance: HYDROCORTISONE
     Indication: PRODUCT USED FOR UNKNOWN INDICATION
     Dosage: 100 MG, QD
     Route: 042
  9. ZOLEDRONATE [Suspect]
     Active Substance: ZOLEDRONIC ACID
     Indication: METASTASES TO BONE
     Dosage: 5 MG, TWICE IN 2 WEEKS
     Route: 042
  10. GIMERACIL [Suspect]
     Active Substance: GIMERACIL
     Indication: CHEMOTHERAPY
  11. HYDROCORTISONE. [Concomitant]
     Active Substance: HYDROCORTISONE
     Dosage: 100 MG, BID
     Route: 042

REACTIONS (1)
  - General physical health deterioration [Fatal]
